FAERS Safety Report 6046480-X (Version None)
Quarter: 2009Q1

REPORT INFORMATION
  Report Type: 
  Country: None (occurrence: None)
  Receive Date: 20090122
  Receipt Date: 20081222
  Transmission Date: 20090719
  Serious: No
  Sender: FDA-Public Use
  Company Number: US-BAYER-200836369NA

PATIENT
  Age: 18 Year
  Sex: Female

DRUGS (1)
  1. MIRENA [Suspect]
     Indication: CONTRACEPTION
     Route: 015
     Dates: start: 20080821

REACTIONS (5)
  - DEHYDRATION [None]
  - FATIGUE [None]
  - INFECTION [None]
  - MIGRAINE [None]
  - POST PROCEDURAL HAEMORRHAGE [None]
